FAERS Safety Report 13706315 (Version 1)
Quarter: 2017Q2

REPORT INFORMATION
  Report Type: Spontaneous
  Country: US (occurrence: US)
  Receive Date: 20170630
  Receipt Date: 20170630
  Transmission Date: 20170830
  Serious: No
  Sender: FDA-Public Use
  Company Number: US-PFIZER INC-2017281852

PATIENT
  Sex: Female

DRUGS (1)
  1. GLIPIZIDE. [Suspect]
     Active Substance: GLIPIZIDE
     Dosage: UNK

REACTIONS (2)
  - Throat tightness [Unknown]
  - Drug hypersensitivity [Unknown]
